FAERS Safety Report 26045715 (Version 1)
Quarter: 2025Q4

REPORT INFORMATION
  Report Type: Spontaneous
  Country: EU (occurrence: EU)
  Receive Date: 20251114
  Receipt Date: 20251114
  Transmission Date: 20260118
  Serious: Yes (Life-Threatening)
  Sender: BANNER
  Company Number: None

PATIENT
  Age: 18 Year
  Sex: Female
  Weight: 50 kg

DRUGS (6)
  1. IBUPROFEN [Suspect]
     Active Substance: IBUPROFEN
     Indication: Product used for unknown indication
  2. AMOXICILLIN\CLAVULANIC ACID [Interacting]
     Active Substance: AMOXICILLIN\CLAVULANIC ACID
     Indication: Product used for unknown indication
     Dosage: (21.-28.06.; 07.-14.07.; 11.-13.08.; 26.-30.09.)
     Route: 048
     Dates: start: 20250621, end: 20250628
  3. DESOGESTREL [Concomitant]
     Active Substance: DESOGESTREL
     Route: 048
     Dates: start: 20230615, end: 20250615
  4. AMOXICILLIN\CLAVULANIC ACID [Interacting]
     Active Substance: AMOXICILLIN\CLAVULANIC ACID
     Indication: Product used for unknown indication
     Dosage: (21.-28.06.; 07.-14.07.; 11.-13.08.; 26.-30.09.)
     Route: 048
     Dates: start: 20250707, end: 20250714
  5. AMOXICILLIN\CLAVULANIC ACID [Interacting]
     Active Substance: AMOXICILLIN\CLAVULANIC ACID
     Indication: Product used for unknown indication
     Dosage: (21.-28.06.; 07.-14.07.; 11.-13.08.; 26.-30.09.)
     Route: 048
     Dates: start: 20250811, end: 20250813
  6. AMOXICILLIN\CLAVULANIC ACID [Interacting]
     Active Substance: AMOXICILLIN\CLAVULANIC ACID
     Indication: Product used for unknown indication
     Dosage: (21.-28.06.; 07.-14.07.; 11.-13.08.; 26.-30.09.)
     Route: 048
     Dates: start: 20250926, end: 20250930

REACTIONS (2)
  - Acute hepatic failure [Recovered/Resolved]
  - Hepatotoxicity [Recovered/Resolved]

NARRATIVE: CASE EVENT DATE: 20251013
